FAERS Safety Report 14698204 (Version 1)
Quarter: 2018Q1

REPORT INFORMATION
  Report Type: Spontaneous
  Country: UA (occurrence: UA)
  Receive Date: 20180330
  Receipt Date: 20180330
  Transmission Date: 20180509
  Serious: Yes (Death)
  Sender: FDA-Public Use
  Company Number: UA-ASTRAZENECA-2018SE37087

PATIENT
  Sex: Male

DRUGS (3)
  1. HEPARIN [Suspect]
     Active Substance: HEPARIN SODIUM
     Indication: MYOCARDIAL INFARCTION
     Dosage: 5000
     Route: 065
     Dates: start: 20180313, end: 20180313
  2. ACETYLSALICYLIC ACID [Suspect]
     Active Substance: ASPIRIN
     Indication: MYOCARDIAL INFARCTION
     Dosage: 300
     Route: 065
     Dates: start: 20180313, end: 20180313
  3. BRILINTA [Suspect]
     Active Substance: TICAGRELOR
     Indication: MYOCARDIAL INFARCTION
     Dosage: 180
     Route: 048
     Dates: start: 20180313, end: 20180313

REACTIONS (1)
  - Death [Fatal]

NARRATIVE: CASE EVENT DATE: 20180313
